FAERS Safety Report 8287979-5 (Version None)
Quarter: 2012Q2

REPORT INFORMATION
  Report Type: 
  Country: None (occurrence: None)
  Receive Date: 20120416
  Receipt Date: 20120403
  Transmission Date: 20120825
  Serious: Yes (Hospitalization, Other)
  Sender: FDA-Public Use
  Company Number: GB-ROCHE-1028431

PATIENT
  Sex: Female
  Weight: 95 kg

DRUGS (2)
  1. MABTHERA [Suspect]
     Indication: RHEUMATOID ARTHRITIS
     Dates: start: 20090416
  2. STEROID NOS [Concomitant]

REACTIONS (6)
  - NEUTROPENIA [None]
  - CHILLS [None]
  - PYREXIA [None]
  - ANAEMIA [None]
  - DRUG DISPENSING ERROR [None]
  - NEUTROPENIC SEPSIS [None]
